FAERS Safety Report 6764513-X (Version None)
Quarter: 2010Q2

REPORT INFORMATION
  Report Type: 
  Country: None (occurrence: None)
  Receive Date: 20100609
  Receipt Date: 20100422
  Transmission Date: 20101027
  Serious: No
  Sender: FDA-Public Use
  Company Number: 2010009697

PATIENT
  Age: 3 Year

DRUGS (1)
  1. CHILDREN'S ZYRTEC ALLERGY [Suspect]
     Indication: HYPERSENSITIVITY
     Dosage: 1 ML TWICE DAILY, ORAL
     Route: 048

REACTIONS (1)
  - INCORRECT DOSE ADMINISTERED [None]
